FAERS Safety Report 21444049 (Version 3)
Quarter: 2023Q2

REPORT INFORMATION
  Report Type: Report from Study
  Country: GR (occurrence: GR)
  Receive Date: 20221012
  Receipt Date: 20230606
  Transmission Date: 20230721
  Serious: Yes (Hospitalization)
  Sender: FDA-Public Use
  Company Number: GR-ABBVIE-4149444

PATIENT
  Age: 70 Year
  Sex: Female
  Weight: 80 kg

DRUGS (5)
  1. CARBIDOPA\LEVODOPA [Suspect]
     Active Substance: CARBIDOPA\LEVODOPA
     Indication: Parkinson^s disease
     Dosage: MORNING DOSE: 10.5 ML; CONTINUOUS RATE: 3.2 ML/H; EXTRA DOSE: 1.3 ML
     Route: 050
  2. CARBIDOPA\LEVODOPA [Suspect]
     Active Substance: CARBIDOPA\LEVODOPA
     Dosage: MORNING DOSE: 10.5 ML; CONTINUOUS RATE: UNKNOWN; EXTRA DOSE: 1.3 ML
     Route: 050
     Dates: start: 20220209, end: 20221008
  3. CARBIDOPA\LEVODOPA [Suspect]
     Active Substance: CARBIDOPA\LEVODOPA
     Dosage: MORNING DOSE: 10.5ML; CONTINUOUS RATE: 3.0MK/HR; EXTRA DOSE: 1.3ML
     Route: 050
     Dates: start: 20221008, end: 20230104
  4. CARBIDOPA\LEVODOPA [Suspect]
     Active Substance: CARBIDOPA\LEVODOPA
     Dosage: MORNING DOSE: 10.5 ML; CONTINUOUS RATE: 3.2 ML/H; EXTRA DOSE: 1.3 ML, LAST ADMIN DATE: 2023
     Route: 050
     Dates: start: 20230104
  5. CARBIDOPA\LEVODOPA [Suspect]
     Active Substance: CARBIDOPA\LEVODOPA
     Dosage: MORNING DOSE: 10.5 ML; CONTINUOUS RATE: UNKNOWN; EXTRA DOSE: 1.3 ML
     Route: 050
     Dates: start: 20220209, end: 20221008

REACTIONS (6)
  - Upper limb fracture [Recovered/Resolved]
  - Fall [Recovered/Resolved]
  - Bradykinesia [Recovering/Resolving]
  - Hallucination [Not Recovered/Not Resolved]
  - Gait disturbance [Recovering/Resolving]
  - Walking aid user [Unknown]

NARRATIVE: CASE EVENT DATE: 20220901
